FAERS Safety Report 8492228-9 (Version None)
Quarter: 2012Q3

REPORT INFORMATION
  Report Type: 
  Country: None (occurrence: None)
  Receive Date: 20120706
  Receipt Date: 20120704
  Transmission Date: 20120928
  Serious: Yes (Other)
  Sender: FDA-Public Use
  Company Number: BR-ROCHE-1084214

PATIENT
  Sex: Female
  Weight: 71 kg

DRUGS (6)
  1. COPEGUS [Suspect]
     Indication: HEPATITIS C
     Route: 065
  2. PEGASYS [Suspect]
     Indication: HEPATITIS C
     Route: 065
     Dates: start: 20120507
  3. ALENIA (BRAZIL) [Concomitant]
     Indication: ASTHMA
     Dosage: DOSE: 12/400
  4. PONDERA [Concomitant]
     Indication: DEPRESSION
  5. OMEPRAZOLE [Concomitant]
  6. LOSARTAN POTASSIUM [Concomitant]
     Indication: HYPERTENSION

REACTIONS (9)
  - HAEMATOCHEZIA [None]
  - MUCOSAL DRYNESS [None]
  - WEIGHT DECREASED [None]
  - ANAEMIA [None]
  - COLD SWEAT [None]
  - UNEVALUABLE EVENT [None]
  - FATIGUE [None]
  - SYNCOPE [None]
  - VISUAL IMPAIRMENT [None]
